FAERS Safety Report 13196122 (Version 1)
Quarter: 2017Q1

REPORT INFORMATION
  Report Type: Report from Study
  Country: US (occurrence: US)
  Receive Date: 20170208
  Receipt Date: 20170208
  Transmission Date: 20170428
  Serious: Yes (Other)
  Sender: FDA-Public Use
  Company Number: PHHO2009US05870

PATIENT
  Sex: Male
  Weight: 71.66 kg

DRUGS (14)
  1. ACLASTA [Suspect]
     Active Substance: ZOLEDRONIC ACID
     Indication: LIVER TRANSPLANT
     Dosage: 5 MG, UNK
     Route: 042
     Dates: start: 20090507
  2. CYCLOSPORINE. [Concomitant]
     Active Substance: CYCLOSPORINE
  3. CALCIUM CITRATE [Concomitant]
     Active Substance: CALCIUM CITRATE
  4. CALCIUM [Concomitant]
     Active Substance: CALCIUM
  5. NYSTATIN. [Concomitant]
     Active Substance: NYSTATIN
  6. MATERNA [Concomitant]
     Active Substance: MINERALS\VITAMINS
  7. BACTRIM [Concomitant]
     Active Substance: SULFAMETHOXAZOLE\TRIMETHOPRIM
  8. MYCOPHENOLATE [Concomitant]
     Active Substance: MYCOPHENOLIC ACID
  9. ACYCLOVIR. [Concomitant]
     Active Substance: ACYCLOVIR
  10. PREDNISONE. [Concomitant]
     Active Substance: PREDNISONE
  11. VITAMIN D [Concomitant]
     Active Substance: CHOLECALCIFEROL
  12. AMLODIPINE [Concomitant]
     Active Substance: AMLODIPINE BESYLATE
  13. TENOFOVIR [Concomitant]
     Active Substance: TENOFOVIR
  14. NEXIUM [Concomitant]
     Active Substance: ESOMEPRAZOLE MAGNESIUM

REACTIONS (3)
  - Pyrexia [Recovered/Resolved]
  - Myalgia [Recovered/Resolved]
  - Arthralgia [Recovered/Resolved]

NARRATIVE: CASE EVENT DATE: 20090507
